FAERS Safety Report 6575332-1 (Version None)
Quarter: 2010Q1

REPORT INFORMATION
  Report Type: 
  Country: None (occurrence: None)
  Receive Date: 20100209
  Receipt Date: 20100128
  Transmission Date: 20100710
  Serious: Yes (Hospitalization)
  Sender: FDA-Public Use
  Company Number: JP-ROCHE-681829

PATIENT
  Sex: Female

DRUGS (5)
  1. TOCILIZUMAB [Suspect]
     Indication: RHEUMATOID ARTHRITIS
     Route: 041
     Dates: start: 20090801
  2. TOCILIZUMAB [Suspect]
     Dosage: NOTE: UNCERTAINTY
     Route: 041
     Dates: start: 20091118
  3. RHEUMATREX [Concomitant]
     Route: 048
     Dates: start: 20090301
  4. RHEUMATREX [Concomitant]
     Route: 048
     Dates: start: 20090501
  5. PROGRAF [Concomitant]
     Dosage: DOSE FORM: PERORAL AGENT
     Route: 048

REACTIONS (3)
  - OROPHARYNGEAL PAIN [None]
  - PLEURAL EFFUSION [None]
  - PLEURISY [None]
